FAERS Safety Report 6252407-8 (Version None)
Quarter: 2009Q3

REPORT INFORMATION
  Report Type: 
  Country: None (occurrence: None)
  Receive Date: 20090701
  Receipt Date: 20090623
  Transmission Date: 20100115
  Serious: Yes (Hospitalization)
  Sender: FDA-Public Use
  Company Number: US-WYE-H09871309

PATIENT
  Age: 65 Year
  Sex: Female
  Weight: 69.7 kg

DRUGS (2)
  1. TORISEL [Suspect]
     Indication: ENDOMETRIAL CANCER
     Dosage: 25 MG DAYS 1, 8, 15 AND 22 (TOTAL DOSE ADMINISTERED THIS COURSE 25 MG)
     Route: 042
     Dates: start: 20090129, end: 20090326
  2. BEVACIZUMAB [Suspect]
     Indication: ENDOMETRIAL CANCER
     Dosage: 10 MG/KG DAYS 1AND 15 (TOTAL DOSE ADMINISTERED THIS COURSE 709 MG)
     Route: 042
     Dates: start: 20090129, end: 20090326

REACTIONS (3)
  - LEFT VENTRICULAR DYSFUNCTION [None]
  - MUSCULAR WEAKNESS [None]
  - RESTRICTIVE CARDIOMYOPATHY [None]
